FAERS Safety Report 8818965 (Version 14)
Quarter: 2020Q3

REPORT INFORMATION
  Report Type: Report from Study
  Country: CA (occurrence: CA)
  Receive Date: 20121001
  Receipt Date: 20200813
  Transmission Date: 20201103
  Serious: Yes (Death, Other)
  Sender: FDA-Public Use
  Company Number: PHHY2012CA059781

PATIENT
  Age: 70 Year
  Sex: Female

DRUGS (5)
  1. SANDOSTATIN LAR DEPOT [Suspect]
     Active Substance: OCTREOTIDE ACETATE
     Dosage: 30 MG, QMO (EVERY 4 WEEKS)
     Route: 030
     Dates: start: 20131114
  2. SANDOSTATIN LAR DEPOT [Suspect]
     Active Substance: OCTREOTIDE ACETATE
     Dosage: 60 MG, QMO (EVERY 4 WEEKS)
     Route: 030
     Dates: start: 20180515
  3. SANDOSTATIN LAR DEPOT [Suspect]
     Active Substance: OCTREOTIDE ACETATE
     Dosage: 30 MG, QMO (EVERY 4 WEEKS)
     Route: 030
     Dates: start: 20120531
  4. SANDOSTATIN LAR DEPOT [Suspect]
     Active Substance: OCTREOTIDE ACETATE
     Dosage: 60 MG, Q3W
     Route: 030
     Dates: start: 20120531
  5. SANDOSTATIN LAR DEPOT [Suspect]
     Active Substance: OCTREOTIDE ACETATE
     Indication: CARCINOID TUMOUR
     Dosage: 60 MG, QMO (EVERY 4 WEEKS)
     Route: 030
     Dates: start: 20120531

REACTIONS (28)
  - Blood pressure systolic increased [Unknown]
  - Blood glucose increased [Unknown]
  - Oedema peripheral [Unknown]
  - Influenza like illness [Unknown]
  - Limb discomfort [Unknown]
  - Anxiety [Recovered/Resolved]
  - Death [Fatal]
  - Blood pressure increased [Recovered/Resolved]
  - Body temperature decreased [Unknown]
  - Asthenia [Unknown]
  - Vaginal haemorrhage [Unknown]
  - Weight decreased [Unknown]
  - Fatigue [Unknown]
  - Inappropriate schedule of product administration [Unknown]
  - Metastases to liver [Unknown]
  - Blood pressure diastolic decreased [Unknown]
  - Illness [Unknown]
  - Needle issue [Unknown]
  - Cough [Unknown]
  - Stress [Unknown]
  - Peripheral swelling [Recovering/Resolving]
  - Knee deformity [Unknown]
  - Joint swelling [Recovered/Resolved]
  - Syncope [Unknown]
  - Oedema [Unknown]
  - Pain [Unknown]
  - Nausea [Unknown]
  - Diarrhoea [Unknown]

NARRATIVE: CASE EVENT DATE: 20130723
